FAERS Safety Report 7315466-7 (Version None)
Quarter: 2011Q1

REPORT INFORMATION
  Report Type: 
  Country: None (occurrence: None)
  Receive Date: 20110218
  Receipt Date: 20110218
  Transmission Date: 20110831
  Serious: Yes (Hospitalization)
  Sender: FDA-Public Use
  Company Number: None

PATIENT
  Age: 85 Year
  Sex: Male
  Weight: 92.3 kg

DRUGS (12)
  1. COSOPT [Concomitant]
  2. TAGAMET [Concomitant]
  3. LUMIGAN [Concomitant]
  4. CALCITONIN [Concomitant]
  5. CALTRATE [Concomitant]
  6. TAGAMET [Suspect]
     Indication: PERIPHERAL VASCULAR DISORDER
     Dosage: ONCE BID PO SINCE LAST ADMIT
     Route: 048
  7. BRIMONIDINE TARTRATE [Concomitant]
  8. POTASSIUM CHLORIDE [Concomitant]
  9. LINEZOLID [Concomitant]
  10. CHOLECALCIFEROL [Concomitant]
  11. COUMADIN [Suspect]
     Indication: ATRIAL FIBRILLATION
     Dosage: 2.5 MG DAILY PO CHRONIC
     Route: 048
  12. DEMADEX [Concomitant]

REACTIONS (5)
  - RENAL FAILURE ACUTE [None]
  - CELLULITIS [None]
  - INTERNATIONAL NORMALISED RATIO INCREASED [None]
  - ANAEMIA MACROCYTIC [None]
  - HAEMATURIA [None]
